FAERS Safety Report 5761239-6 (Version None)
Quarter: 2008Q2

REPORT INFORMATION
  Report Type: 
  Country: None (occurrence: None)
  Receive Date: 20080606
  Receipt Date: 20080529
  Transmission Date: 20081010
  Serious: Yes (Death)
  Sender: FDA-Public Use
  Company Number: US-AMGEN-US272419

PATIENT
  Sex: Female

DRUGS (17)
  1. ARANESP [Suspect]
     Indication: ANAEMIA OF MALIGNANT DISEASE
     Dates: start: 20070727, end: 20071128
  2. TAXOTERE [Concomitant]
     Dates: start: 20070718, end: 20071106
  3. ADRIAMYCIN PFS [Concomitant]
     Dates: start: 20070718, end: 20071106
  4. CYTOXAN [Concomitant]
     Dates: start: 20070718, end: 20071106
  5. ARIMIDEX [Concomitant]
     Dates: start: 20071128
  6. NEULASTA [Concomitant]
  7. GLUCOPHAGE [Concomitant]
  8. ZOCOR [Concomitant]
  9. DECADRON [Concomitant]
  10. ALOXI [Concomitant]
  11. ACTOS [Concomitant]
  12. GLUCOVANCE [Concomitant]
  13. PHENERGAN [Concomitant]
  14. INFLUENZA VACCINE [Concomitant]
     Dates: start: 20071207
  15. PNEUMOVAX 23 [Concomitant]
     Dates: start: 20071128
  16. SIMVASTATIN [Concomitant]
  17. VITAMIN CAP [Concomitant]

REACTIONS (8)
  - BONE MARROW FAILURE [None]
  - CEREBRAL INFARCTION [None]
  - CONVULSION [None]
  - DECREASED APPETITE [None]
  - HAEMOGLOBIN DECREASED [None]
  - IRON DEFICIENCY [None]
  - MUCOSAL INFLAMMATION [None]
  - VITAMIN B12 DEFICIENCY [None]
